FAERS Safety Report 8186947-1 (Version None)
Quarter: 2012Q1

REPORT INFORMATION
  Report Type: 
  Country: None (occurrence: None)
  Receive Date: 20120306
  Receipt Date: 20120221
  Transmission Date: 20120608
  Serious: Yes (Hospitalization)
  Sender: FDA-Public Use
  Company Number: DE-FRI-1000028760

PATIENT
  Sex: Female

DRUGS (5)
  1. CITALOPRAM HYDROBROMIDE [Suspect]
     Dosage: 20 MG
     Route: 048
     Dates: end: 20111201
  2. METOPROLOL SUCCINATE [Interacting]
     Dosage: 200 MG
     Route: 048
     Dates: end: 20111202
  3. OMEPRAZOLE [Interacting]
     Dosage: 20 MG
     Route: 048
     Dates: end: 20111201
  4. MORPHINE [Interacting]
     Dosage: 200 MG
     Route: 048
     Dates: end: 20111204
  5. ARICEPT [Interacting]
     Dosage: 5 MG
     Route: 048
     Dates: start: 20111129, end: 20111201

REACTIONS (2)
  - DRUG INTERACTION [None]
  - VOMITING [None]
